FAERS Safety Report 9771488 (Version 4)
Quarter: 2014Q1

REPORT INFORMATION
  Report Type: Spontaneous
  Country: HU (occurrence: HU)
  Receive Date: 20131219
  Receipt Date: 20140210
  Transmission Date: 20141002
  Serious: No
  Sender: FDA-Public Use
  Company Number: HU-BIOGENIDEC-2013BI113422

PATIENT
  Age: 29 Year
  Sex: Female

DRUGS (6)
  1. TYSABRI [Suspect]
     Indication: MULTIPLE SCLEROSIS
     Route: 042
     Dates: start: 20120621
  2. VITAMIN B1 [Concomitant]
  3. VITAMIN B12 [Concomitant]
  4. VITAMIN C [Concomitant]
  5. MAGNESIUM [Concomitant]
  6. CITALOPRAM [Concomitant]

REACTIONS (3)
  - Neutrophil count decreased [Not Recovered/Not Resolved]
  - Viral infection [Recovered/Resolved]
  - Lymphocytosis [Not Recovered/Not Resolved]
